FAERS Safety Report 5377927-X (Version None)
Quarter: 2007Q3

REPORT INFORMATION
  Report Type: 
  Country: None (occurrence: None)
  Receive Date: 20070703
  Receipt Date: 20070629
  Transmission Date: 20080115
  Serious: Yes (Death, Other)
  Sender: FDA-Public Use
  Company Number: AR-MERCK-0707ARG00002

PATIENT
  Age: 98 Year
  Sex: Female

DRUGS (2)
  1. INVANZ [Suspect]
     Indication: LOWER RESPIRATORY TRACT INFECTION
     Route: 065
     Dates: start: 20061002, end: 20061006
  2. AMPICILLIN SODIUM AND SULBACTAM SODIUM [Concomitant]
     Indication: LOWER RESPIRATORY TRACT INFECTION
     Route: 065
     Dates: start: 20060925

REACTIONS (1)
  - DEATH [None]
